FAERS Safety Report 16765179 (Version 2)
Quarter: 2019Q4

REPORT INFORMATION
  Report Type: Spontaneous
  Country: US (occurrence: US)
  Receive Date: 20190903
  Receipt Date: 20191126
  Transmission Date: 20200122
  Serious: Yes (Hospitalization, Other)
  Sender: FDA-Public Use
  Company Number: US-HORIZON-ACT-0238-2019

PATIENT
  Age: 1 Year
  Sex: Male

DRUGS (27)
  1. LABETALOL HCL [Concomitant]
     Active Substance: LABETALOL HYDROCHLORIDE
     Dosage: 100MG
  2. DEXTROSE 5%-0.2% NACL-KCL [Concomitant]
     Dosage: 5%-0.2%
  3. AMIKACIN SULFATE. [Concomitant]
     Active Substance: AMIKACIN SULFATE
     Dosage: 1000MG/4ML VIAL
  4. HYDRALAZINE HCL [Concomitant]
     Active Substance: HYDRALAZINE HYDROCHLORIDE
     Dosage: 100MG
  5. CALCIUM CARBONATE. [Concomitant]
     Active Substance: CALCIUM CARBONATE
     Dosage: 100%
  6. POTASSIUM CHL-NORMAL SALINE [Concomitant]
  7. ALBUTEROL SULFATE. [Concomitant]
     Active Substance: ALBUTEROL SULFATE
  8. MUPIROCIN. [Concomitant]
     Active Substance: MUPIROCIN
     Dosage: 100%
  9. SULFAMETHOXAZOLE-TRIMETHOPRIM [Concomitant]
     Active Substance: SULFAMETHOXAZOLE\TRIMETHOPRIM
  10. SODIUM CHLORIDE. [Concomitant]
     Active Substance: SODIUM CHLORIDE
     Dosage: 0.9% IV SOLUTION
     Route: 042
  11. IBUPROFEN. [Concomitant]
     Active Substance: IBUPROFEN
     Dosage: 100%
  12. CLINDAMYCIN BENZOYL PEROXIDE [Concomitant]
  13. ETHAMBUTOL HCL [Concomitant]
     Active Substance: ETHAMBUTOL HYDROCHLORIDE
     Dosage: 100MG
  14. SODIUM CHLORIDE-WATER [Concomitant]
     Dosage: 0.9%
     Route: 042
  15. ENALAPRILAT. [Concomitant]
     Active Substance: ENALAPRILAT
     Dosage: 1.25 MG/ML VIAL
  16. CASPOFUNGIN ACETATE. [Concomitant]
     Active Substance: CASPOFUNGIN ACETATE
     Dosage: 50MG VIAL
  17. AZITHROMYCIN ANHYDROUS. [Concomitant]
     Active Substance: AZITHROMYCIN ANHYDROUS
     Dosage: 100%
  18. POTASSIUM ACID TARTRATE [Concomitant]
  19. RANITIDINE HCL [Concomitant]
     Active Substance: RANITIDINE HYDROCHLORIDE
     Dosage: 150MG
  20. MIDAZOLAM [Concomitant]
     Active Substance: MIDAZOLAM HYDROCHLORIDE
     Dosage: 100%
  21. RIFAMPIN. [Concomitant]
     Active Substance: RIFAMPIN
     Dosage: 150MG
  22. LEVETIRACETAM 100% POWDER [Concomitant]
     Dosage: 100%
  23. HEPARIN FLUSH [Concomitant]
     Active Substance: HEPARIN SODIUM
     Dosage: 10 UNIT/ML SYRINGE
  24. ACETAMINOPHEN. [Concomitant]
     Active Substance: ACETAMINOPHEN
     Dosage: 160MG/5ML SOLUTION
  25. ACTIMMUNE [Suspect]
     Active Substance: INTERFERON GAMMA-1B
     Indication: IMMUNODEFICIENCY
     Dosage: 20MCG EVERY OTHER DAY
     Dates: end: 20190820
  26. ISRADIPINE. [Concomitant]
     Active Substance: ISRADIPINE
     Dosage: 2.5MG
  27. AMLODIPINE BESILATE [Concomitant]
     Active Substance: AMLODIPINE BESYLATE
     Dosage: 100%

REACTIONS (5)
  - Primary immunodeficiency syndrome [Unknown]
  - Condition aggravated [Unknown]
  - Bone marrow transplant [Unknown]
  - Chronic granulomatous disease [Unknown]
  - Off label use [Unknown]
